FAERS Safety Report 20100522 (Version 1)
Quarter: 2021Q4

REPORT INFORMATION
  Report Type: Spontaneous
  Country: JP (occurrence: JP)
  Receive Date: 20211123
  Receipt Date: 20211123
  Transmission Date: 20220303
  Serious: Yes (Hospitalization)
  Sender: FDA-Public Use
  Company Number: JP-TEVA-2021-JP-1979971

PATIENT
  Age: 2 Year
  Sex: Male

DRUGS (12)
  1. ETOPOSIDE [Suspect]
     Active Substance: ETOPOSIDE
     Indication: Acute myeloid leukaemia
     Dosage: 150 MG/M2 DAILY; FIRST INDUCTION THERAPY ON DAY 1 TO DAY 5
     Route: 065
  2. ETOPOSIDE [Suspect]
     Active Substance: ETOPOSIDE
     Indication: Acute myeloid leukaemia
     Dosage: 100 MG/M2 DAILY; SECOND INDUCTION THERAPY ON DAY 1 TO DAY 5
     Route: 065
  3. CYTARABINE [Suspect]
     Active Substance: CYTARABINE
     Indication: Acute myeloid leukaemia
     Dosage: FIRST INDUCTION THERAPY, OVER 12 HOURS FROM FROM DAY 6 TO DAY 12
     Route: 041
  4. CYTARABINE [Suspect]
     Active Substance: CYTARABINE
     Indication: Acute myeloid leukaemia
     Dosage: DOSE: 3G/M2 EVERY 12H AS SECOND INDUCTION THERAPY, FROM DAY 1 TO DAY 3
     Route: 041
  5. CYTARABINE [Suspect]
     Active Substance: CYTARABINE
     Indication: Acute myeloid leukaemia
     Dosage: DOSE: 2G/M2 EVER 12H, AS INTENSIFICATION THERAPY FROM DAY 1 TO DAY 5
     Route: 041
  6. HYDROCORTISONE [Suspect]
     Active Substance: HYDROCORTISONE
     Indication: Acute myeloid leukaemia
     Dosage: SINGLE DOSE
     Route: 037
  7. MITOXANTRONE [Suspect]
     Active Substance: MITOXANTRONE HYDROCHLORIDE
     Indication: Acute myeloid leukaemia
     Dosage: 5 MG/M2 DAILY;
     Route: 065
  8. METHOTREXATE [Suspect]
     Active Substance: METHOTREXATE
     Indication: Acute myeloid leukaemia
     Dosage: SINGLE DOSE
     Route: 037
  9. IDARUBICIN [Suspect]
     Active Substance: IDARUBICIN
     Indication: Acute myeloid leukaemia
     Dosage: ON DAY ONE, AS SECOND INDUCTION THERAPY
     Route: 065
  10. ETOPOSIDE [Suspect]
     Active Substance: ETOPOSIDE
     Indication: Acute myeloid leukaemia
     Dosage: 150 MG/M2 DAILY;
     Route: 065
  11. CYTARABINE [Suspect]
     Active Substance: CYTARABINE
     Indication: Acute myeloid leukaemia
     Dosage: 200 MG/M2 DAILY;
     Route: 041
  12. CYTARABINE [Suspect]
     Active Substance: CYTARABINE
     Indication: Acute myeloid leukaemia
     Dosage: SINGLE-DOSE
     Route: 037

REACTIONS (5)
  - Gastroenteritis adenovirus [Recovered/Resolved]
  - Acute myeloid leukaemia [Recovered/Resolved]
  - Hypernatraemia [Recovering/Resolving]
  - Acidosis [Recovering/Resolving]
  - Leukaemia [Recovered/Resolved]
